FAERS Safety Report 22207246 (Version 1)
Quarter: 2023Q2

REPORT INFORMATION
  Report Type: Spontaneous
  Country: US (occurrence: US)
  Receive Date: 20230413
  Receipt Date: 20230413
  Transmission Date: 20230721
  Serious: Yes (Death, Life-Threatening, Hospitalization, Other)
  Sender: FDA-Public Use
  Company Number: US-drreddys-LIT/USA/23/0163679

PATIENT
  Age: 9 Month
  Sex: Male

DRUGS (5)
  1. CLOPIDOGREL BISULFATE [Suspect]
     Active Substance: CLOPIDOGREL BISULFATE
     Indication: Coronary artery aneurysm
  2. PROPRANOLOL [Suspect]
     Active Substance: PROPRANOLOL HYDROCHLORIDE
     Indication: Coronary artery aneurysm
  3. ASPIRIN [Suspect]
     Active Substance: ASPIRIN
     Indication: Coronary artery aneurysm
  4. ENOXAPARIN [Suspect]
     Active Substance: ENOXAPARIN
     Indication: Coronary artery aneurysm
  5. RIVAROXABAN [Suspect]
     Active Substance: RIVAROXABAN
     Indication: Coronary artery aneurysm

REACTIONS (8)
  - Death [Fatal]
  - Respiratory distress [Unknown]
  - Pulseless electrical activity [Unknown]
  - Cardiac arrest [Unknown]
  - Cardiac failure [Unknown]
  - Loss of consciousness [Unknown]
  - Rhinovirus infection [Unknown]
  - Drug ineffective for unapproved indication [Unknown]
